FAERS Safety Report 9751976 (Version 1)
Quarter: 2013Q4

REPORT INFORMATION
  Report Type: Spontaneous
  Country: US (occurrence: None)
  Receive Date: 20131211
  Receipt Date: 20131211
  Transmission Date: 20140711
  Serious: Yes (Hospitalization)
  Sender: FDA-Public Use
  Company Number: None

PATIENT
  Age: 76 Year
  Sex: Female

DRUGS (1)
  1. WARFARIN [Suspect]
     Indication: PORTAL VEIN THROMBOSIS
     Route: 048

REACTIONS (2)
  - Subarachnoid haemorrhage [None]
  - Fall [None]
